FAERS Safety Report 7118675-5 (Version None)
Quarter: 2010Q4

REPORT INFORMATION
  Report Type: 
  Country: None (occurrence: None)
  Receive Date: 20101123
  Receipt Date: 20101110
  Transmission Date: 20110411
  Serious: No
  Sender: FDA-Public Use
  Company Number: US-JNJFOC-20101104426

PATIENT
  Sex: Male
  Weight: 86.18 kg

DRUGS (3)
  1. FENTANYL-100 [Suspect]
     Indication: SPINAL FUSION SURGERY
     Route: 062
  2. PERCOCET [Concomitant]
     Indication: RADICULAR PAIN
     Route: 048
  3. VALIUM [Concomitant]
     Indication: RADICULAR PAIN
     Route: 048

REACTIONS (1)
  - WRONG TECHNIQUE IN DRUG USAGE PROCESS [None]
